FAERS Safety Report 17107045 (Version 5)
Quarter: 2020Q2

REPORT INFORMATION
  Report Type: Report from Study
  Country: GB (occurrence: GB)
  Receive Date: 20191203
  Receipt Date: 20200623
  Transmission Date: 20200713
  Serious: Yes (Hospitalization, Other)
  Sender: FDA-Public Use
  Company Number: GB-JNJFOC-20191133854

PATIENT
  Sex: Male

DRUGS (18)
  1. STELARA [Suspect]
     Active Substance: USTEKINUMAB
  2. SANDOCAL 1000 [Concomitant]
  3. PROCHLORPERAZINE. [Concomitant]
     Active Substance: PROCHLORPERAZINE
  4. LANSOPRAZOLE. [Concomitant]
     Active Substance: LANSOPRAZOLE
  5. MAGNASPARTATE [Concomitant]
  6. ATORVASTATIN [Concomitant]
     Active Substance: ATORVASTATIN
  7. PARACETAMOL [Concomitant]
     Active Substance: ACETAMINOPHEN
  8. ASPIRIN                            /00002701/ [Concomitant]
     Active Substance: ASPIRIN
  9. ORAMORPH [Concomitant]
     Active Substance: MORPHINE SULFATE
     Indication: PAIN
     Route: 065
  10. MST                                /00021210/ [Concomitant]
     Active Substance: MAGNESIUM SALICYLATE
  11. STELARA [Suspect]
     Active Substance: USTEKINUMAB
     Indication: CROHN^S DISEASE
     Route: 058
     Dates: start: 20190916, end: 20200106
  12. BISOPROLOL [Concomitant]
     Active Substance: BISOPROLOL
  13. EPLERENONE. [Concomitant]
     Active Substance: EPLERENONE
  14. ADCAL D3 [Concomitant]
     Active Substance: CALCIUM CARBONATE\CHOLECALCIFEROL
  15. PREDNISOLONE. [Concomitant]
     Active Substance: PREDNISOLONE
  16. ZOMORPH [Concomitant]
     Active Substance: MORPHINE SULFATE
  17. GABAPENTIN. [Concomitant]
     Active Substance: GABAPENTIN
  18. GLYCERYL TRINITRATE [Concomitant]
     Active Substance: NITROGLYCERIN
     Route: 065

REACTIONS (17)
  - Influenza like illness [Recovered/Resolved]
  - Weight decreased [Unknown]
  - Tooth disorder [Unknown]
  - Myocardial infarction [Unknown]
  - Intestinal resection [Unknown]
  - Upper respiratory tract infection [Unknown]
  - Body height decreased [Unknown]
  - Vomiting [Unknown]
  - Blood magnesium decreased [Recovered/Resolved]
  - Intracardiac thrombus [Unknown]
  - Blood calcium decreased [Recovered/Resolved]
  - Vision blurred [Unknown]
  - Sleep deficit [Unknown]
  - Diarrhoea [Recovered/Resolved]
  - Hallucination [Unknown]
  - Electrolyte depletion [Recovered/Resolved]
  - Drug ineffective [Unknown]

NARRATIVE: CASE EVENT DATE: 2019
